FAERS Safety Report 9781282 (Version 2)
Quarter: 2013Q4

REPORT INFORMATION
  Report Type: Spontaneous
  Country: US (occurrence: US)
  Receive Date: 20131224
  Receipt Date: 20131224
  Transmission Date: 20140711
  Serious: No
  Sender: FDA-Public Use
  Company Number: US-GILEAD-2010-0031443

PATIENT
  Sex: Male

DRUGS (1)
  1. CAYSTON [Suspect]
     Indication: CYSTIC FIBROSIS

REACTIONS (3)
  - Haemoptysis [Unknown]
  - Pulmonary function test decreased [Unknown]
  - Asthenia [Unknown]
